FAERS Safety Report 20144229 (Version 1)
Quarter: 2021Q4

REPORT INFORMATION
  Report Type: Report from Study
  Country: CA (occurrence: CA)
  Receive Date: 20211203
  Receipt Date: 20211203
  Transmission Date: 20220303
  Serious: Yes (Hospitalization)
  Sender: FDA-Public Use
  Company Number: CA-ABBVIE-21K-028-4166179-00

PATIENT
  Sex: Male

DRUGS (1)
  1. HUMIRA [Suspect]
     Active Substance: ADALIMUMAB
     Indication: Psoriasis
     Route: 058
     Dates: start: 20170508, end: 20211015

REACTIONS (6)
  - Intervertebral disc protrusion [Unknown]
  - Gait inability [Unknown]
  - Hypoaesthesia [Unknown]
  - Pain in extremity [Unknown]
  - COVID-19 [Unknown]
  - Sciatica [Unknown]

NARRATIVE: CASE EVENT DATE: 20210101
